FAERS Safety Report 4378494-X (Version None)
Quarter: 2004Q2

REPORT INFORMATION
  Report Type: 
  Country: None (occurrence: None)
  Receive Date: 20040609
  Receipt Date: 20040526
  Transmission Date: 20050107
  Serious: Yes (Hospitalization)
  Sender: FDA-Public Use
  Company Number: FR_040504187

PATIENT
  Age: 72 Year
  Sex: Male

DRUGS (9)
  1. PEMETREXED [Suspect]
     Indication: PLEURAL MESOTHELIOMA MALIGNANT
     Dosage: 500 MG/M2/1 OTHER
     Route: 050
     Dates: start: 20040219
  2. CISPLATIN [Concomitant]
  3. FOLIC ACID [Concomitant]
  4. VITAMIN B-12 [Concomitant]
  5. DEXAMETHASONE [Concomitant]
  6. NICARDIPINE HCL [Concomitant]
  7. OMIX (TAMSULOSIN HYDROCHLORIDE) [Concomitant]
  8. MORPHINE [Concomitant]
  9. LAXATIVE [Concomitant]

REACTIONS (2)
  - HYPERTENSION [None]
  - URINARY RETENTION [None]
